FAERS Safety Report 7557139-1 (Version None)
Quarter: 2011Q2

REPORT INFORMATION
  Report Type: 
  Country: None (occurrence: None)
  Receive Date: 20110620
  Receipt Date: 20110608
  Transmission Date: 20111010
  Serious: Yes (Other)
  Sender: FDA-Public Use
  Company Number: US-AMGEN-USASP2011007685

PATIENT
  Age: 48 Year
  Sex: Female
  Weight: 108.84 kg

DRUGS (11)
  1. ENBREL [Suspect]
     Indication: PSORIASIS
     Dosage: 50 MG, 2 TIMES/WK
     Route: 058
     Dates: start: 20030826, end: 20110103
  2. STELARA [Concomitant]
     Dosage: 90 MG, UNK
  3. MOBIC [Concomitant]
  4. ASPIRIN [Concomitant]
     Dosage: 325 MG, UNK
  5. VITAMIN A [Concomitant]
     Dosage: 50000 UNIT, QD
  6. VITAMIN A [Concomitant]
     Dosage: 1000 UNIT, QD
  7. ENBREL [Suspect]
     Indication: PSORIATIC ARTHROPATHY
     Dosage: 50 MG, QWK
     Route: 058
     Dates: start: 20091204, end: 20100715
  8. TRIAMCINOLONE [Concomitant]
  9. SUDAFED 12 HOUR [Concomitant]
     Dosage: 120 MG, PRN
  10. FERROUS SULFATE TAB [Concomitant]
     Dosage: UNK UNK, QD
  11. MOTRIN [Concomitant]
     Dosage: 200 MG, BID

REACTIONS (4)
  - PSORIASIS [None]
  - PSORIATIC ARTHROPATHY [None]
  - OSTEOARTHRITIS [None]
  - DRUG INEFFECTIVE [None]
